FAERS Safety Report 8630772 (Version 2)
Quarter: 2013Q1

REPORT INFORMATION
  Report Type: Spontaneous
  Country: CA (occurrence: CA)
  Receive Date: 20120622
  Receipt Date: 20130329
  Transmission Date: 20140127
  Serious: Yes (Hospitalization, Other)
  Sender: FDA-Public Use
  Company Number: CA-JNJFOC-20120113579

PATIENT
  Sex: Female

DRUGS (12)
  1. REMICADE [Suspect]
     Indication: CROHN^S DISEASE
     Dosage: TOTAL NUMBER OF INFUSIONS RECEIVED:14
     Route: 042
     Dates: start: 20120611
  2. REMICADE [Suspect]
     Indication: CROHN^S DISEASE
     Route: 042
     Dates: start: 201204
  3. REMICADE [Suspect]
     Indication: CROHN^S DISEASE
     Route: 042
     Dates: start: 2010
  4. REMICADE [Suspect]
     Indication: CROHN^S DISEASE
     Route: 042
     Dates: start: 2012
  5. REMICADE [Suspect]
     Indication: COLITIS ULCERATIVE
     Route: 042
     Dates: start: 2012
  6. REMICADE [Suspect]
     Indication: COLITIS ULCERATIVE
     Route: 042
     Dates: start: 2010
  7. REMICADE [Suspect]
     Indication: COLITIS ULCERATIVE
     Route: 042
     Dates: start: 201204
  8. REMICADE [Suspect]
     Indication: COLITIS ULCERATIVE
     Dosage: TOTAL NUMBER OF INFUSIONS RECEIVED:14
     Route: 042
     Dates: start: 20120611
  9. MEZAVANT [Concomitant]
     Indication: COLITIS ULCERATIVE
     Route: 065
  10. IMURAN [Concomitant]
     Indication: COLITIS ULCERATIVE
     Route: 065
  11. PREDNISONE [Concomitant]
     Route: 065
  12. BUDESONIDE [Concomitant]
     Route: 065

REACTIONS (10)
  - Clostridium difficile infection [Recovered/Resolved]
  - Arthralgia [Unknown]
  - Vomiting [Unknown]
  - Pain [Unknown]
  - Sinusitis [Unknown]
  - Adverse drug reaction [Unknown]
  - Therapeutic response decreased [Unknown]
  - Malaise [Unknown]
  - Feeling abnormal [Unknown]
  - Headache [Unknown]
